FAERS Safety Report 6526543-2 (Version None)
Quarter: 2010Q1

REPORT INFORMATION
  Report Type: 
  Country: None (occurrence: None)
  Receive Date: 20100105
  Receipt Date: 20091231
  Transmission Date: 20100710
  Serious: Yes (Other)
  Sender: FDA-Public Use
  Company Number: GB-JNJCH-2009032185

PATIENT
  Sex: Male

DRUGS (1)
  1. NICORETTE INVISI PATCH [Suspect]
     Indication: SMOKING CESSATION THERAPY
     Route: 062
     Dates: start: 20091202, end: 20091202

REACTIONS (4)
  - ADVERSE EVENT [None]
  - APPLICATION SITE BURN [None]
  - APPLICATION SITE SCAB [None]
  - BLISTER [None]
